FAERS Safety Report 20621861 (Version 2)
Quarter: 2022Q2

REPORT INFORMATION
  Report Type: Spontaneous
  Country: IT (occurrence: IT)
  Receive Date: 20220322
  Receipt Date: 20220408
  Transmission Date: 20220721
  Serious: Yes (Death, Other)
  Sender: FDA-Public Use
  Company Number: IT-NOVARTISPH-NVSC2022IT064759

PATIENT
  Age: 74 Year
  Sex: Male

DRUGS (3)
  1. PAZOPANIB [Suspect]
     Active Substance: PAZOPANIB
     Indication: Renal cell carcinoma
     Dosage: 800 MG, QD (CONTINUED UNTIL JUNE 2021)
     Route: 065
     Dates: start: 20191202
  2. PAZOPANIB [Suspect]
     Active Substance: PAZOPANIB
     Dosage: 600 MG, QD
     Route: 065
  3. TAMSULOSIN HYDROCHLORIDE [Concomitant]
     Active Substance: TAMSULOSIN HYDROCHLORIDE
     Indication: Product used for unknown indication
     Dosage: UNK, ( 1 TABLET)
     Route: 065

REACTIONS (4)
  - Cerebral haemorrhage [Fatal]
  - Haemolytic anaemia [Unknown]
  - Pulmonary embolism [Unknown]
  - Weight increased [Unknown]
